FAERS Safety Report 16678017 (Version 1)
Quarter: 2019Q3

REPORT INFORMATION
  Report Type: Report from Study
  Country: US (occurrence: US)
  Receive Date: 20190807
  Receipt Date: 20190807
  Transmission Date: 20191004
  Serious: Yes (Other)
  Sender: FDA-Public Use
  Company Number: US-ROCHE-2235701

PATIENT
  Sex: Male
  Weight: 54.4 kg

DRUGS (7)
  1. AMOXICILLIN. [Concomitant]
     Active Substance: AMOXICILLIN
     Route: 065
  2. ZYRTEC [Concomitant]
     Active Substance: CETIRIZINE HYDROCHLORIDE
     Dosage: PRN
     Route: 065
  3. NUTROPIN [Suspect]
     Active Substance: SOMATROPIN
     Indication: GROWTH HORMONE DEFICIENCY
     Dosage: 1.5 MG DAILY AT BEDTIME
     Route: 058
     Dates: start: 20181205
  4. SSD [Concomitant]
     Active Substance: SILVER SULFADIAZINE
     Dosage: 1%
     Route: 061
     Dates: start: 20190625
  5. NUTROPIN [Suspect]
     Active Substance: SOMATROPIN
     Route: 058
  6. POTASSIUM CLAVULANATE [Concomitant]
     Active Substance: CLAVULANATE POTASSIUM
     Route: 065
  7. NUTROPIN [Suspect]
     Active Substance: SOMATROPIN
     Indication: HYPOPITUITARISM
     Route: 058
     Dates: start: 20190708

REACTIONS (4)
  - Tibia fracture [Unknown]
  - Fibula fracture [Unknown]
  - Foot fracture [Unknown]
  - Fall [Unknown]
